FAERS Safety Report 5487649-2 (Version None)
Quarter: 2007Q4

REPORT INFORMATION
  Report Type: 
  Country: None (occurrence: None)
  Receive Date: 20071012
  Receipt Date: 20071012
  Transmission Date: 20080405
  Serious: Yes (Life-Threatening, Hospitalization)
  Sender: FDA-Public Use
  Company Number: None

PATIENT
  Age: 37 Year
  Sex: Female
  Weight: 76.2043 kg

DRUGS (7)
  1. PROVIGIL [Suspect]
     Indication: FATIGUE
     Dosage: WAS TAKING AT HOME DISCONTINUED ON
  2. PREDNISONE [Concomitant]
  3. PROCARDIA [Concomitant]
  4. ZOLOFT [Concomitant]
  5. ALTACE [Concomitant]
  6. CAL WITH VITD [Concomitant]
  7. ASPIRIN [Concomitant]

REACTIONS (6)
  - AGRANULOCYTOSIS [None]
  - FEBRILE NEUTROPENIA [None]
  - HYPOMAGNESAEMIA [None]
  - NEUTROPENIA [None]
  - NORMOCHROMIC NORMOCYTIC ANAEMIA [None]
  - THROMBOCYTOPENIA [None]
